FAERS Safety Report 8976272 (Version 1)
Quarter: 2012Q4

REPORT INFORMATION
  Report Type: 
  Country: US (occurrence: US)
  Receive Date: 20121220
  Receipt Date: 20121220
  Transmission Date: 20130627
  Serious: Yes (Other)
  Sender: FDA-Public Use
  Company Number: US-UCBSA-073446

PATIENT
  Age: 26 Year
  Sex: Male

DRUGS (16)
  1. VIMPAT [Suspect]
     Indication: CONVULSION
     Dosage: DOSE: 1 TABLET
     Dates: start: 201211, end: 2012
  2. VIMPAT [Suspect]
     Indication: CONVULSION
     Dosage: DOSE: 2 TABLETS
     Dates: start: 2012
  3. DEPAKATE [Concomitant]
     Indication: CONVULSION
  4. DIAMOX [Concomitant]
     Indication: CONVULSION
     Dosage: UNKNOWN DOSE
  5. ZANTAC [Concomitant]
     Dosage: UNKNOWN DOSE
  6. SYNTHROID [Concomitant]
     Dosage: UNKNOWN DOSE
  7. MULTIVITAMINS [Concomitant]
     Dosage: UNKNOWN DOSE
  8. CALCIUM [Concomitant]
     Dosage: UNKNOWN DOSE
  9. VITAMIN D [Concomitant]
     Dosage: UNKNOWN DOSE
  10. VITAMIN B [Concomitant]
     Dosage: UNKNOWN DOSE
  11. FABRACON [Concomitant]
     Dosage: UNKNOWN DOSE
  12. ADVIL [Concomitant]
     Dosage: UNKNOWN DOSE
  13. ALBURERTAL [Concomitant]
     Dosage: UNKNOWN DOSE
  14. NASOCORT [Concomitant]
     Dosage: UNKNOWN DOSE
  15. CLARATON [Concomitant]
  16. CLARATON [Concomitant]

REACTIONS (4)
  - Rectal haemorrhage [Not Recovered/Not Resolved]
  - Contusion [Not Recovered/Not Resolved]
  - Skin discolouration [Unknown]
  - Back pain [Recovering/Resolving]
